FAERS Safety Report 5874635-3 (Version None)
Quarter: 2008Q3

REPORT INFORMATION
  Report Type: 
  Country: None (occurrence: None)
  Receive Date: 20080829
  Receipt Date: 20071030
  Transmission Date: 20090109
  Serious: Yes (Hospitalization)
  Sender: FDA-Public Use
  Company Number: 2007S1009939

PATIENT
  Age: 58 Year
  Sex: Male

DRUGS (5)
  1. CLARITHROMYCIN [Suspect]
     Indication: LOWER RESPIRATORY TRACT INFECTION
     Dosage: 500 MG; TWICE A DAY ORAL
     Route: 048
     Dates: start: 19970819, end: 19970830
  2. DIDANOSINE [Suspect]
     Indication: HIV INFECTION
     Dosage: 200 MG; ORAL; TWICE A DAY
     Route: 048
  3. NEVIRAPINE [Suspect]
     Indication: HIV INFECTION
     Dosage: 200 MG; ORAL; TWICE A DAY
     Route: 048
  4. SIMVASTATIN [Suspect]
     Indication: HYPERCHOLESTEROLAEMIA
     Dosage: 20 MG; ORAL; DAILY
     Route: 048
  5. ZIDOVUDINE [Suspect]
     Indication: HIV INFECTION
     Dosage: 250 MG; ORAL; TWICE A DAY
     Route: 048

REACTIONS (13)
  - ABNORMAL BEHAVIOUR [None]
  - ANXIETY [None]
  - DISTURBANCE IN ATTENTION [None]
  - DRUG INTERACTION [None]
  - DRUG LEVEL INCREASED [None]
  - HOMICIDAL IDEATION [None]
  - MENTAL DISORDER [None]
  - MENTAL STATUS CHANGES [None]
  - NEUROSIS [None]
  - PSYCHIATRIC SYMPTOM [None]
  - PSYCHOMOTOR HYPERACTIVITY [None]
  - SPEECH DISORDER [None]
  - SUICIDAL IDEATION [None]
